FAERS Safety Report 25760993 (Version 1)
Quarter: 2025Q3

REPORT INFORMATION
  Report Type: Spontaneous
  Country: EU (occurrence: EU)
  Receive Date: 20250904
  Receipt Date: 20250904
  Transmission Date: 20251020
  Serious: Yes (Hospitalization, Other)
  Sender: BAYER HEALTHCARE PHARMACEUTICALS INC.
  Company Number: EU-BAYER-2025A114180

PATIENT
  Sex: Male

DRUGS (2)
  1. FINERENONE [Suspect]
     Active Substance: FINERENONE
     Indication: Type 2 diabetes mellitus
  2. FINERENONE [Suspect]
     Active Substance: FINERENONE
     Indication: Albuminuria

REACTIONS (2)
  - Urinary tract infection [None]
  - Glomerular filtration rate decreased [Recovering/Resolving]
